FAERS Safety Report 4420592-6 (Version None)
Quarter: 2004Q3

REPORT INFORMATION
  Report Type: 
  Country: None (occurrence: None)
  Receive Date: 20040809
  Receipt Date: 20040730
  Transmission Date: 20050211
  Serious: Yes (Other)
  Sender: FDA-Public Use
  Company Number: DE-BRISTOL-MYERS SQUIBB COMPANY-12658811

PATIENT
  Age: 84 Year
  Sex: Female

DRUGS (2)
  1. COAPROVEL TABS [Suspect]
     Indication: HYPERTENSION
     Dosage: DOSE REDUCED 20APR2004 TO 162.5 MG ONCE DAILY
     Route: 048
     Dates: start: 20040322
  2. NORVASC [Concomitant]
     Indication: HYPERTENSION
     Route: 048

REACTIONS (1)
  - CIRCULATORY COLLAPSE [None]
